FAERS Safety Report 9157057 (Version 1)
Quarter: 2013Q1

REPORT INFORMATION
  Report Type: Report from Study
  Country: CA (occurrence: CA)
  Receive Date: 20130312
  Receipt Date: 20130312
  Transmission Date: 20140127
  Serious: Yes (Hospitalization)
  Sender: FDA-Public Use
  Company Number: CA-JNJFOC-20130217242

PATIENT
  Sex: Male
  Weight: 99.79 kg

DRUGS (2)
  1. REMICADE [Suspect]
     Indication: CROHN^S DISEASE
     Route: 042
  2. REMICADE [Suspect]
     Indication: CROHN^S DISEASE
     Route: 042

REACTIONS (8)
  - Blindness [Unknown]
  - Asthenia [Unknown]
  - Abdominal pain [Unknown]
  - Arthralgia [Unknown]
  - Vision blurred [Unknown]
  - Limb injury [Unknown]
  - Fatigue [Unknown]
  - Mood altered [Unknown]
